FAERS Safety Report 23302979 (Version 8)
Quarter: 2024Q1

REPORT INFORMATION
  Report Type: Report from Study
  Country: DE (occurrence: DE)
  Receive Date: 20231215
  Receipt Date: 20240327
  Transmission Date: 20240409
  Serious: Yes (Hospitalization)
  Sender: FDA-Public Use
  Company Number: DE-SUN PHARMACEUTICAL INDUSTRIES LTD-2023RR-423482

PATIENT
  Age: 26 Year
  Sex: Female
  Weight: 82.5 kg

DRUGS (4)
  1. SONIDEGIB [Suspect]
     Active Substance: SONIDEGIB
     Indication: Medulloblastoma
     Dosage: 200 MILLIGRAM, DAILY (EVERY 1 DAYS)
     Route: 048
     Dates: start: 20230907, end: 20231130
  2. SONIDEGIB [Suspect]
     Active Substance: SONIDEGIB
     Dosage: 200 MILLIGRAM, DAILY (EVERY 1 DAYS)
     Route: 048
     Dates: start: 20231208
  3. SONIDEGIB [Suspect]
     Active Substance: SONIDEGIB
     Dosage: UNK, QOD
     Route: 065
  4. VINCRISTINE [Suspect]
     Active Substance: VINCRISTINE
     Indication: Medulloblastoma
     Dosage: 2 MILLIGRAM, TWICE EVERY 6 WEEKS
     Route: 042
     Dates: start: 20230911, end: 20231011

REACTIONS (1)
  - Dehydration [Recovered/Resolved with Sequelae]

NARRATIVE: CASE EVENT DATE: 20231130
